FAERS Safety Report 18181570 (Version 2)
Quarter: 2021Q4

REPORT INFORMATION
  Report Type: Report from Study
  Country: US (occurrence: US)
  Receive Date: 20200821
  Receipt Date: 20211210
  Transmission Date: 20220303
  Serious: Yes (Other)
  Sender: FDA-Public Use
  Company Number: US-ELI_LILLY_AND_COMPANY-US202008004485

PATIENT
  Sex: Female

DRUGS (2)
  1. HUMULIN NOS [Suspect]
     Active Substance: INSULIN HUMAN
     Indication: Product used for unknown indication
     Dosage: 50 U, DAILY
     Route: 065
  2. HUMULIN NOS [Suspect]
     Active Substance: INSULIN HUMAN
     Dosage: 100 U, DAILY
     Route: 065

REACTIONS (2)
  - Shock hypoglycaemic [Unknown]
  - Diabetic coma [Unknown]
